FAERS Safety Report 19123724 (Version 1)
Quarter: 2021Q2

REPORT INFORMATION
  Report Type: Report from Study
  Country: HU (occurrence: HU)
  Receive Date: 20210412
  Receipt Date: 20210412
  Transmission Date: 20210717
  Serious: Yes (Other)
  Sender: FDA-Public Use
  Company Number: HU-INCYTE CORPORATION-2020IN013582

PATIENT

DRUGS (2)
  1. JAKAVI [Suspect]
     Active Substance: RUXOLITINIB
     Indication: POLYCYTHAEMIA VERA
     Dosage: UNK
     Route: 048
     Dates: start: 201612
  2. JAKAVI [Suspect]
     Active Substance: RUXOLITINIB
     Dosage: UNK
     Route: 048

REACTIONS (6)
  - Thrombocytopenia [Unknown]
  - Polycythaemia vera [Unknown]
  - Hepatosplenomegaly [Unknown]
  - Malignant neoplasm progression [Unknown]
  - Condition aggravated [Unknown]
  - Leukoerythroblastic anaemia [Unknown]
